FAERS Safety Report 8797657 (Version 4)
Quarter: 2018Q1

REPORT INFORMATION
  Report Type: Spontaneous
  Country: US (occurrence: US)
  Receive Date: 20120920
  Receipt Date: 20180214
  Transmission Date: 20180509
  Serious: Yes (Other)
  Sender: FDA-Public Use
  Company Number: US-AMGEN-USASP2012058057

PATIENT
  Age: 56 Year
  Sex: Female
  Weight: 71.7 kg

DRUGS (5)
  1. RIBAVIRIN. [Concomitant]
     Active Substance: RIBAVIRIN
     Indication: HEPATITIS C
     Dosage: UNK
     Dates: start: 20110701, end: 20120531
  2. INTERFERON [Concomitant]
     Active Substance: INTERFERON
     Dosage: UNK
     Dates: start: 20110701, end: 20120525
  3. NEUPOGEN [Concomitant]
     Active Substance: FILGRASTIM
     Dosage: UNK
  4. PEGASYS [Concomitant]
     Active Substance: PEGINTERFERON ALFA-2A
     Indication: HEPATITIS C
     Dosage: UNK
     Dates: start: 2011, end: 2012
  5. PROCRIT [Suspect]
     Active Substance: ERYTHROPOIETIN
     Indication: ANAEMIA
     Dosage: 40000 UNIT, QWK
     Route: 058
     Dates: start: 20110809, end: 20120529

REACTIONS (5)
  - Aplasia pure red cell [Not Recovered/Not Resolved]
  - Therapeutic response decreased [Unknown]
  - Anti-erythropoietin antibody positive [Unknown]
  - Anaemia [Not Recovered/Not Resolved]
  - Neutralising antibodies positive [Unknown]

NARRATIVE: CASE EVENT DATE: 20120710
